FAERS Safety Report 6129507-6 (Version None)
Quarter: 2009Q1

REPORT INFORMATION
  Report Type: 
  Country: None (occurrence: None)
  Receive Date: 20090324
  Receipt Date: 20090316
  Transmission Date: 20090719
  Serious: Yes (Life-Threatening)
  Sender: FDA-Public Use
  Company Number: FR-ROCHE-622251

PATIENT
  Sex: Female

DRUGS (1)
  1. ROCEPHIN [Suspect]
     Dosage: DOSE REPORTED AS I GRAM ONCE.
     Route: 042
     Dates: start: 20090210, end: 20090210

REACTIONS (4)
  - ANAPHYLACTIC SHOCK [None]
  - BLOOD PRESSURE DECREASED [None]
  - BRONCHOSPASM [None]
  - LOSS OF CONSCIOUSNESS [None]
